FAERS Safety Report 5468035-8 (Version None)
Quarter: 2007Q3

REPORT INFORMATION
  Report Type: 
  Country: None (occurrence: None)
  Receive Date: 20070926
  Receipt Date: 20070912
  Transmission Date: 20080115
  Serious: Yes (Hospitalization)
  Sender: FDA-Public Use
  Company Number: ES-ELI_LILLY_AND_COMPANY-ES200709002526

PATIENT
  Age: 30 Year
  Sex: Male

DRUGS (3)
  1. ZYPREXA [Suspect]
     Indication: SCHIZOPHRENIA
     Dosage: 10 MG, DAILY (1/D)
     Route: 048
     Dates: start: 20000101, end: 20070625
  2. VENLAFAXINE HCL [Concomitant]
     Indication: ANXIETY DISORDER
     Dosage: 150 MG, DAILY (1/D)
     Route: 048
     Dates: start: 20000101, end: 20070625
  3. LEXATIN [Concomitant]
     Dosage: 6 MG, DAILY (1/D)

REACTIONS (2)
  - RENAL FAILURE ACUTE [None]
  - RHABDOMYOLYSIS [None]
